FAERS Safety Report 10073890 (Version 1)
Quarter: 2014Q2

REPORT INFORMATION
  Report Type: Report from Study
  Country: US (occurrence: US)
  Receive Date: 20140412
  Receipt Date: 20140412
  Transmission Date: 20141212
  Serious: Yes (Hospitalization, Other)
  Sender: FDA-Public Use
  Company Number: PHEH2014US006878

PATIENT
  Sex: Female

DRUGS (12)
  1. TOBI PODHALER [Suspect]
     Dosage: 4 DF, BID  EVERY OTHER MONTH
     Route: 055
  2. TOBI PODHALER [Suspect]
     Dosage: UNK UKN, UNK
  3. CALTRATE [Concomitant]
     Dosage: 600 MG, UNK
  4. CREON [Concomitant]
     Dosage: 12 K-38 K
  5. FISH OIL [Concomitant]
     Dosage: 500 MG, UNK
  6. IBUPROFEN [Concomitant]
     Dosage: 800 MG, UNK
  7. IRON [Concomitant]
     Dosage: 18 MG, UNK
  8. MULTI-VIT [Concomitant]
     Dosage: UNK
  9. PROBIOTICS [Concomitant]
     Dosage: 10 B
  10. VITAMIN D3 [Concomitant]
     Dosage: 10000 U, UNK
  11. ZYRTEC [Concomitant]
     Dosage: 10 MG, UNK
  12. OMEPRAZOLE [Concomitant]
     Dosage: 20 MG, UNK

REACTIONS (9)
  - Cystic fibrosis [Unknown]
  - Condition aggravated [Unknown]
  - Cough [Unknown]
  - Dyspnoea [Unknown]
  - Lethargy [Unknown]
  - Body temperature decreased [Unknown]
  - Asthma [Unknown]
  - Obstructive airways disorder [Unknown]
  - Depression [Unknown]
